FAERS Safety Report 4456000-9 (Version None)
Quarter: 2004Q3

REPORT INFORMATION
  Report Type: 
  Country: None (occurrence: None)
  Receive Date: 20040920
  Receipt Date: 20040906
  Transmission Date: 20050211
  Serious: Yes (Disabling)
  Sender: FDA-Public Use
  Company Number: 02100-JPN-04-0248

PATIENT
  Age: 80 Year
  Sex: Male

DRUGS (1)
  1. CILOSTAZOL [Suspect]
     Indication: CEREBRAL INFARCTION
     Route: 048

REACTIONS (1)
  - CEREBELLAR HAEMORRHAGE [None]
